FAERS Safety Report 16720729 (Version 1)
Quarter: 2019Q3

REPORT INFORMATION
  Report Type: Spontaneous
  Country: US (occurrence: US)
  Receive Date: 20190703
  Receipt Date: 20190703
  Transmission Date: 20191005
  Serious: Yes (Death)
  Sender: FDA-Public Use
  Company Number: None

PATIENT
  Age: 58 Year
  Sex: Female

DRUGS (1)
  1. SODIUM PHENYLBUTYRATE. [Suspect]
     Active Substance: SODIUM PHENYLBUTYRATE
     Indication: UREA CYCLE DISORDER
     Dosage: ?          OTHER DOSE:3 T;?
     Route: 048
     Dates: start: 20190211

REACTIONS (1)
  - Death [None]

NARRATIVE: CASE EVENT DATE: 20190702
